FAERS Safety Report 5565916-1 (Version None)
Quarter: 2007Q4

REPORT INFORMATION
  Report Type: 
  Country: None (occurrence: None)
  Receive Date: 20071213
  Receipt Date: 20071205
  Transmission Date: 20080405
  Serious: Yes (Other)
  Sender: FDA-Public Use
  Company Number: 100#08#2007-05123

PATIENT
  Age: 7 Day
  Sex: Female

DRUGS (2)
  1. IBUPROFEN [Suspect]
     Indication: PATENT DUCTUS ARTERIOSUS
     Dosage: 10 MG/KG FOLLOWE BY TWO DOSES OF 5 MG/KG AT 24 AND 48 HOURS LATER ORAL
     Route: 048
  2. AMINOGLYCOSIDES             (AMINOGLYCOSIDE ANTIBACTERIALS) [Suspect]
     Indication: DRUG USE FOR UNKNOWN INDICATION

REACTIONS (2)
  - DRUG INTERACTION [None]
  - RENAL IMPAIRMENT NEONATAL [None]
